FAERS Safety Report 15238221 (Version 1)
Quarter: 2018Q3

REPORT INFORMATION
  Report Type: Spontaneous
  Country: US (occurrence: US)
  Receive Date: 20180710
  Receipt Date: 20180710
  Transmission Date: 20181010
  Serious: No
  Sender: FDA-Public Use
  Company Number: None

PATIENT
  Age: 6 Month
  Sex: Male

DRUGS (3)
  1. HEMANGEOL [Suspect]
     Active Substance: PROPRANOLOL HYDROCHLORIDE
     Indication: INTRACRANIAL HAEMANGIOMA
     Route: 048
     Dates: start: 20180413
  2. RANITIDINE. [Concomitant]
     Active Substance: RANITIDINE
  3. PROPRANOLOL [Concomitant]
     Active Substance: PROPRANOLOL HYDROCHLORIDE

REACTIONS (2)
  - Diarrhoea [None]
  - Drug dose omission [None]

NARRATIVE: CASE EVENT DATE: 20180709
